FAERS Safety Report 15555802 (Version 1)
Quarter: 2018Q4

REPORT INFORMATION
  Report Type: Report from Study
  Country: CH (occurrence: CH)
  Receive Date: 20181026
  Receipt Date: 20181026
  Transmission Date: 20190205
  Serious: Yes (Other)
  Sender: FDA-Public Use
  Company Number: CH-MYLANLABS-2018M1078127

PATIENT
  Age: 67 Year
  Sex: Male

DRUGS (3)
  1. MORPHINE [Suspect]
     Active Substance: MORPHINE
     Indication: PRODUCT USED FOR UNKNOWN INDICATION
     Route: 065
  2. METHOTREXATE. [Suspect]
     Active Substance: METHOTREXATE
     Indication: T-CELL TYPE ACUTE LEUKAEMIA
     Dosage: CONSOLIDATION THERAPY
     Route: 065
  3. L-ASPARAGINASE [Suspect]
     Active Substance: ASPARAGINASE
     Indication: T-CELL TYPE ACUTE LEUKAEMIA
     Dosage: THE PATIENT RECEIVED 6000 IU/ME2 DURING INDUCTION (ON DAYS 8, 10, 12, 20, 22, 24, 26, AND 28), 10...
     Route: 065

REACTIONS (2)
  - Hyperammonaemia [Recovered/Resolved]
  - Septic encephalopathy [Recovered/Resolved]
